FAERS Safety Report 18946855 (Version 1)
Quarter: 2021Q1

REPORT INFORMATION
  Report Type: Spontaneous
  Country: CA (occurrence: CA)
  Receive Date: 20210226
  Receipt Date: 20210226
  Transmission Date: 20210420
  Serious: Yes (Other)
  Sender: FDA-Public Use
  Company Number: CA-TAKEDA-2021TUS010845

PATIENT
  Age: 64 Year
  Sex: Female
  Weight: 85 kg

DRUGS (2)
  1. RANITIDINE. [Concomitant]
     Active Substance: RANITIDINE
  2. KIOVIG [Suspect]
     Active Substance: HUMAN IMMUNOGLOBULIN G
     Indication: ENCEPHALOPATHY
     Dosage: 400 MILLILITER
     Route: 042

REACTIONS (13)
  - Eczema [Unknown]
  - Vertigo [Unknown]
  - Hyperhidrosis [Unknown]
  - Chest pain [Unknown]
  - Pruritus [Unknown]
  - Oedema peripheral [Unknown]
  - Diarrhoea [Unknown]
  - Dizziness [Unknown]
  - Balance disorder [Unknown]
  - Dyspnoea [Unknown]
  - Transfusion reaction [Unknown]
  - Urticaria [Unknown]
  - Erythema [Unknown]
